FAERS Safety Report 4705811-0 (Version None)
Quarter: 2005Q3

REPORT INFORMATION
  Report Type: 
  Country: None (occurrence: None)
  Receive Date: 20050701
  Receipt Date: 20050624
  Transmission Date: 20060218
  Serious: Yes (Hospitalization)
  Sender: FDA-Public Use
  Company Number: AU-MERCK-0506AUS00240

PATIENT
  Age: 52 Year
  Sex: Male

DRUGS (5)
  1. TIMOPTIC-XE [Suspect]
     Indication: GLAUCOMA
     Route: 047
     Dates: start: 20040101, end: 20050501
  2. TIMOPTIC-XE [Suspect]
     Route: 047
     Dates: start: 20050501
  3. TIMOPTIC-XE [Suspect]
     Route: 047
     Dates: end: 20040101
  4. NAPROXEN [Concomitant]
     Route: 065
  5. DOXYCYCLINE [Concomitant]
     Route: 065

REACTIONS (5)
  - DRUG INEFFECTIVE [None]
  - DYSPNOEA EXERTIONAL [None]
  - INTRAOCULAR PRESSURE INCREASED [None]
  - PRESCRIBED OVERDOSE [None]
  - PROSTATE CANCER [None]
